FAERS Safety Report 4938859-1 (Version None)
Quarter: 2006Q1

REPORT INFORMATION
  Report Type: 
  Country: None (occurrence: None)
  Receive Date: 20060306
  Receipt Date: 20060223
  Transmission Date: 20060701
  Serious: Yes (Other)
  Sender: FDA-Public Use
  Company Number: 2006026652

PATIENT
  Sex: Male
  Weight: 111.1313 kg

DRUGS (6)
  1. LIPITOR [Suspect]
     Indication: STENT PLACEMENT
  2. ZOCOR [Suspect]
     Indication: STENT PLACEMENT
  3. ZETIA [Suspect]
     Indication: STENT PLACEMENT
  4. PLAVIX [Concomitant]
  5. ZANTAC [Concomitant]
  6. TOPROL-XL [Concomitant]

REACTIONS (6)
  - ASTHENIA [None]
  - FATIGUE [None]
  - MUSCLE ATROPHY [None]
  - MUSCULAR WEAKNESS [None]
  - TENDON INJURY [None]
  - TRIGGER FINGER [None]
